FAERS Safety Report 8823998 (Version 1)
Quarter: 2012Q4

REPORT INFORMATION
  Report Type: 
  Country: US (occurrence: US)
  Receive Date: 20121003
  Receipt Date: 20121003
  Transmission Date: 20130627
  Serious: No
  Sender: FDA-Public Use
  Company Number: US-009507513-1210USA001337

PATIENT
  Sex: Female

DRUGS (3)
  1. MIRALAX [Suspect]
     Indication: CONSTIPATION
     Dosage: UNK, qd
     Dates: start: 20120908
  2. MIRALAX [Suspect]
     Indication: MEDICAL OBSERVATION
     Dosage: 8.5 g, Unknown
     Route: 048
     Dates: start: 20120909
  3. MIRALAX [Suspect]
     Dosage: 17 g, Unknown
     Route: 048
     Dates: start: 20120910

REACTIONS (3)
  - Dizziness [Unknown]
  - Incorrect drug administration rate [Unknown]
  - Underdose [Unknown]
